FAERS Safety Report 9491079 (Version 1)
Quarter: 2013Q3

REPORT INFORMATION
  Report Type: Other
  Country: DK (occurrence: DK)
  Receive Date: 20130830
  Receipt Date: 20130830
  Transmission Date: 20140515
  Serious: Yes (Disabling, Other)
  Sender: FDA-Public Use
  Company Number: DK-GE HEALTHCARE MEDICAL DIAGNOSTICS-OSCN-E2B_00000026

PATIENT
  Age: 43 Year
  Sex: Female

DRUGS (3)
  1. OMNISCAN [Suspect]
     Indication: PRODUCT USED FOR UNKNOWN INDICATION
     Route: 065
     Dates: start: 200105
  2. OMNISCAN [Suspect]
     Indication: DIAGNOSTIC PROCEDURE
     Route: 065
     Dates: start: 200209
  3. DOTAREM [Suspect]
     Indication: PRODUCT USED FOR UNKNOWN INDICATION
     Route: 065
     Dates: start: 200409, end: 200409

REACTIONS (1)
  - Nephrogenic systemic fibrosis [Not Recovered/Not Resolved]
